FAERS Safety Report 6375702-0 (Version None)
Quarter: 2009Q3

REPORT INFORMATION
  Report Type: 
  Country: None (occurrence: None)
  Receive Date: 20090922
  Receipt Date: 20090922
  Transmission Date: 20100115
  Serious: No
  Sender: FDA-Public Use
  Company Number: None

PATIENT
  Sex: Female

DRUGS (3)
  1. CHLORPHENIRAMINE 4MG [Suspect]
     Indication: MULTIPLE ALLERGIES
     Dosage: 4MG DAILY AT BEDTIME PO
     Route: 048
     Dates: start: 20080501, end: 20080831
  2. CHLORPHENIRAMINE 4MG [Suspect]
     Indication: MULTIPLE ALLERGIES
     Dosage: 4MG DAILY AT BEDTIME PO
     Route: 048
     Dates: start: 20090501, end: 20090831
  3. XOLAIR [Concomitant]

REACTIONS (2)
  - ARTHRALGIA [None]
  - OEDEMA PERIPHERAL [None]
